FAERS Safety Report 13670376 (Version 1)
Quarter: 2017Q2

REPORT INFORMATION
  Report Type: Spontaneous
  Country: FR (occurrence: FR)
  Receive Date: 20170620
  Receipt Date: 20170620
  Transmission Date: 20170830
  Serious: Yes (Other)
  Sender: FDA-Public Use
  Company Number: FR-BAYER-2017-114219

PATIENT
  Age: 40 Year
  Sex: Female

DRUGS (1)
  1. MIRENA [Suspect]
     Active Substance: LEVONORGESTREL
     Indication: CONTRACEPTION
     Dosage: 20 MCG/24HR, CONT
     Route: 015
     Dates: start: 200101

REACTIONS (24)
  - Libido decreased [Unknown]
  - Sleep disorder [Unknown]
  - Memory impairment [Unknown]
  - Headache [Unknown]
  - Vertigo [Unknown]
  - Hyperchlorhydria [Unknown]
  - Anxiety [Unknown]
  - Night sweats [Unknown]
  - Visual impairment [Unknown]
  - Hypovitaminosis [Unknown]
  - Vaginal haemorrhage [Unknown]
  - Fluid retention [Unknown]
  - Fatigue [Unknown]
  - Stress [Unknown]
  - Abdominal distension [Unknown]
  - Breast pain [Unknown]
  - Alopecia [Unknown]
  - Depression [Unknown]
  - Metrorrhagia [Unknown]
  - Thyroid disorder [Unknown]
  - Impatience [Unknown]
  - Weight loss poor [Unknown]
  - Blood magnesium decreased [Unknown]
  - Drop attacks [Unknown]

NARRATIVE: CASE EVENT DATE: 20161030
